FAERS Safety Report 13514014 (Version 2)
Quarter: 2017Q2

REPORT INFORMATION
  Report Type: Spontaneous
  Country: US (occurrence: US)
  Receive Date: 20170504
  Receipt Date: 20170614
  Transmission Date: 20170830
  Serious: No
  Sender: FDA-Public Use
  Company Number: US-PFIZER INC-2017191113

PATIENT
  Age: 82 Year
  Sex: Female

DRUGS (1)
  1. DISOPYRAMIDE PHOSPHATE. [Suspect]
     Active Substance: DISOPYRAMIDE PHOSPHATE
     Dosage: UNK (TAKE 1 MORNING AND 1 NIGHT)

REACTIONS (2)
  - Feeling abnormal [Unknown]
  - Malaise [Not Recovered/Not Resolved]
